FAERS Safety Report 11827100 (Version 2)
Quarter: 2016Q1

REPORT INFORMATION
  Report Type: Spontaneous
  Country: US (occurrence: US)
  Receive Date: 20151211
  Receipt Date: 20160318
  Transmission Date: 20160525
  Serious: Yes (Other)
  Sender: FDA-Public Use
  Company Number: US-BAYER-2015-483586

PATIENT
  Age: 33 Year
  Sex: Female

DRUGS (3)
  1. MACROBID [Concomitant]
     Active Substance: NITROFURANTOIN\NITROFURANTOIN MONOHYDRATE
     Route: 048
  2. VALTREX [Concomitant]
     Active Substance: VALACYCLOVIR HYDROCHLORIDE
     Route: 048
  3. MIRENA [Suspect]
     Active Substance: LEVONORGESTREL
     Indication: CONTRACEPTION
     Dosage: 20 MCG/24HR, CONT
     Route: 015
     Dates: start: 20150430

REACTIONS (12)
  - Change of bowel habit [None]
  - Vaginal infection [None]
  - Vaginal haemorrhage [None]
  - Dysmenorrhoea [None]
  - Metrorrhagia [None]
  - Genital haemorrhage [Unknown]
  - Depression [None]
  - Vaginal discharge [None]
  - Coital bleeding [None]
  - Vaginal odour [None]
  - Menstruation irregular [None]
  - Anxiety [None]

NARRATIVE: CASE EVENT DATE: 201506
